FAERS Safety Report 6391997-1 (Version None)
Quarter: 2009Q4

REPORT INFORMATION
  Report Type: 
  Country: None (occurrence: None)
  Receive Date: 20091007
  Receipt Date: 20091005
  Transmission Date: 20100525
  Serious: Yes (Hospitalization)
  Sender: FDA-Public Use
  Company Number: B0596562A

PATIENT
  Sex: Female

DRUGS (3)
  1. TOPOTECAN [Suspect]
     Indication: SMALL CELL LUNG CANCER STAGE UNSPECIFIED
     Dosage: 1.5MGM2 CYCLIC
     Route: 058
     Dates: start: 20090831, end: 20090904
  2. ALIZAPRIDE [Concomitant]
     Indication: NAUSEA
     Dates: start: 20090831
  3. ESCITALOPRAM [Concomitant]
     Indication: DEPRESSION
     Dates: start: 20090827

REACTIONS (7)
  - ASTHENIA [None]
  - DEHYDRATION [None]
  - DIARRHOEA [None]
  - HYPOTENSION [None]
  - NAUSEA [None]
  - TACHYCARDIA [None]
  - VOMITING [None]
